FAERS Safety Report 6120330-5 (Version None)
Quarter: 2009Q1

REPORT INFORMATION
  Report Type: 
  Country: None (occurrence: None)
  Receive Date: 20090312
  Receipt Date: 20090312
  Transmission Date: 20090719
  Serious: No
  Sender: FDA-Public Use
  Company Number: None

PATIENT
  Sex: Female
  Weight: 102.9665 kg

DRUGS (2)
  1. GABAPENTIN [Suspect]
     Indication: INTERVERTEBRAL DISC PROTRUSION
     Dosage: 800MG FOUR TIMES/DAY ORAL
     Route: 048
     Dates: start: 20080901
  2. GABAPENTIN [Suspect]
     Indication: PAIN
     Dosage: 800MG FOUR TIMES/DAY ORAL
     Route: 048
     Dates: start: 20080901

REACTIONS (7)
  - CHEST PAIN [None]
  - DIZZINESS [None]
  - DRUG INTOLERANCE [None]
  - MOOD SWINGS [None]
  - PAIN IN EXTREMITY [None]
  - PRODUCT QUALITY ISSUE [None]
  - VISION BLURRED [None]
